FAERS Safety Report 26110514 (Version 2)
Quarter: 2025Q4

REPORT INFORMATION
  Report Type: Report from Study
  Country: CA (occurrence: CA)
  Receive Date: 20251202
  Receipt Date: 20251211
  Transmission Date: 20260118
  Serious: Yes (Other)
  Sender: CELLTRION
  Company Number: CA-CELLTRION INC.-2025CA041667

PATIENT

DRUGS (2)
  1. INFLIXIMAB-DYYB [Suspect]
     Active Substance: INFLIXIMAB-DYYB
     Indication: Crohn^s disease
     Dosage: 400 MG EVERY 8 WEEKS
     Route: 042
     Dates: start: 20250930
  2. INFLIXIMAB-DYYB [Suspect]
     Active Substance: INFLIXIMAB-DYYB
     Dosage: 400 MG EVERY 8 WEEKS
     Route: 042
     Dates: start: 20250930

REACTIONS (10)
  - Muscle spasms [Unknown]
  - Malaise [Unknown]
  - Symptom recurrence [Unknown]
  - Poor venous access [Unknown]
  - Stent placement [Unknown]
  - Constipation [Unknown]
  - Pain [Unknown]
  - Therapeutic response shortened [Unknown]
  - Overdose [Unknown]
  - Drug ineffective [Unknown]

NARRATIVE: CASE EVENT DATE: 20250101
